FAERS Safety Report 7962621-9 (Version None)
Quarter: 2011Q4

REPORT INFORMATION
  Report Type: 
  Country: None (occurrence: None)
  Receive Date: 20111207
  Receipt Date: 20111206
  Transmission Date: 20120403
  Serious: No
  Sender: FDA-Public Use
  Company Number: US-TEVA-312398USA

PATIENT
  Sex: Female
  Weight: 59.928 kg

DRUGS (2)
  1. PLAN B ONE-STEP [Suspect]
     Indication: POST COITAL CONTRACEPTION
     Dosage: 1.5 MILLIGRAM;
     Route: 048
     Dates: start: 20111012, end: 20111012
  2. PLAN B ONE-STEP [Suspect]
     Dosage: 1.5 MILLIGRAM;
     Route: 048
     Dates: start: 20111022, end: 20111022

REACTIONS (3)
  - PREGNANCY AFTER POST COITAL CONTRACEPTION [None]
  - MENSTRUATION IRREGULAR [None]
  - DRUG INEFFECTIVE [None]
